FAERS Safety Report 8061544-7 (Version None)
Quarter: 2012Q1

REPORT INFORMATION
  Report Type: 
  Country: None (occurrence: None)
  Receive Date: 20120120
  Receipt Date: 20120112
  Transmission Date: 20120608
  Serious: Yes (Other)
  Sender: FDA-Public Use
  Company Number: PHHY2012CN003515

PATIENT
  Age: 72 Year
  Sex: Female

DRUGS (2)
  1. CAPTOPRIL [Suspect]
     Dosage: UNK
  2. CAPTOPRIL [Suspect]
     Indication: HYPERTENSION
     Dosage: UNK

REACTIONS (5)
  - PEMPHIGUS [None]
  - ERYTHEMA [None]
  - PRURITUS [None]
  - SKIN LESION [None]
  - BLISTER [None]
